FAERS Safety Report 8584003 (Version 4)
Quarter: 2013Q3

REPORT INFORMATION
  Report Type: Report from Study
  Country: US (occurrence: US)
  Receive Date: 20120529
  Receipt Date: 20130821
  Transmission Date: 20140515
  Serious: Yes (Hospitalization)
  Sender: FDA-Public Use
  Company Number: US-ACTELION-A-NJ2012-61250

PATIENT
  Age: 68 Year
  Sex: Female

DRUGS (8)
  1. TRACLEER [Suspect]
     Indication: PULMONARY ARTERIAL HYPERTENSION
     Dosage: 125 MG, BID
     Route: 048
     Dates: start: 2011
  2. PRADAXA [Concomitant]
  3. TRAZODONE [Concomitant]
     Dosage: 150 MG, QD
     Dates: start: 2012
  4. COUMADIN [Concomitant]
     Dosage: 5 MG, QD
     Dates: start: 2010
  5. TORSEMIDE [Concomitant]
     Dosage: 60 MG, TID
     Dates: start: 2012
  6. NEURONTIN [Concomitant]
     Dosage: 200 MG, QD
     Dates: start: 2010
  7. REGLAN [Concomitant]
     Dosage: 10 MG, TID
     Dates: start: 2010
  8. CYMBALTA [Concomitant]
     Dosage: 30 MG, QD
     Dates: start: 2012

REACTIONS (8)
  - Cardiac ablation [Unknown]
  - Atrial fibrillation [Recovering/Resolving]
  - Implantable defibrillator insertion [Recovering/Resolving]
  - Atrial flutter [Unknown]
  - Loss of consciousness [Unknown]
  - Dizziness [Unknown]
  - Balance disorder [Unknown]
  - Dizziness postural [Unknown]
